FAERS Safety Report 19154478 (Version 1)
Quarter: 2021Q2

REPORT INFORMATION
  Report Type: Spontaneous
  Country: US (occurrence: US)
  Receive Date: 20210419
  Receipt Date: 20210419
  Transmission Date: 20210717
  Serious: Yes (Other)
  Sender: FDA-Public Use
  Company Number: US-NANJING KING-FRIEND BIOCHEMICAL PHARMACEUTICAL CO. LTD.-2021NKF00048

PATIENT
  Age: 44 Year
  Sex: Male

DRUGS (1)
  1. HEPARIN [Suspect]
     Active Substance: HEPARIN SODIUM
     Route: 065

REACTIONS (2)
  - Heparin-induced thrombocytopenia [Recovered/Resolved]
  - Thrombosis in device [Recovered/Resolved]
